FAERS Safety Report 9996895 (Version 2)
Quarter: 2014Q1

REPORT INFORMATION
  Report Type: Spontaneous
  Country: US (occurrence: US)
  Receive Date: 20140311
  Receipt Date: 20140311
  Transmission Date: 20141002
  Serious: Yes (Hospitalization)
  Sender: FDA-Public Use
  Company Number: US-ACORDA-ACO_31923_2012

PATIENT
  Age: 25 Year
  Sex: Male

DRUGS (2)
  1. AMPYRA [Suspect]
     Indication: MULTIPLE SCLEROSIS
     Dosage: 10 MG, Q 12 HRS
     Route: 048
     Dates: start: 201006
  2. ARICEPT [Concomitant]
     Indication: PRODUCT USED FOR UNKNOWN INDICATION
     Dosage: 10 MG, UNK
     Route: 065

REACTIONS (3)
  - Chest pain [Unknown]
  - Multiple sclerosis relapse [Recovered/Resolved]
  - Multiple sclerosis relapse [Recovering/Resolving]
